FAERS Safety Report 26206527 (Version 1)
Quarter: 2025Q4

REPORT INFORMATION
  Report Type: Spontaneous
  Country: CN (occurrence: CN)
  Receive Date: 20251229
  Receipt Date: 20251229
  Transmission Date: 20260118
  Serious: Yes (Other)
  Sender: ROCHE
  Company Number: CN-CHEPLA-2025014390

PATIENT
  Age: 64 Year
  Sex: Female
  Weight: 60 kg

DRUGS (7)
  1. BALOXAVIR MARBOXIL [Suspect]
     Active Substance: BALOXAVIR MARBOXIL
     Indication: Nasopharyngitis
     Dosage: APPROVAL NO. GYZZ HJ20210028
     Route: 048
     Dates: start: 20251202, end: 20251202
  2. OSELTAMIVIR PHOSPHATE [Suspect]
     Active Substance: OSELTAMIVIR PHOSPHATE
     Indication: Nasopharyngitis
     Dosage: APPROVAL NO. GYZZ HJ20140344
     Route: 048
     Dates: start: 20251129, end: 20251201
  3. CAPECITABINE [Suspect]
     Active Substance: CAPECITABINE
     Indication: Colon cancer
     Dosage: OXALIPLATIN INJECTION 200MG IVGTT ONCE IN COMBINATION WITH CAPECITABINE TABLETS 1.5G PO TID (D0-14)
     Route: 048
     Dates: start: 20251101
  4. CAPECITABINE [Suspect]
     Active Substance: CAPECITABINE
     Dosage: OXALIPLATIN INJECTION 200MG IVGTT ONCE COMBINED WITH CAPECITABINE TABLETS 1.5G PO TID (D0-14)
     Route: 048
     Dates: start: 20251125
  5. CEFPROZIL [Suspect]
     Active Substance: CEFPROZIL
     Indication: Upper respiratory tract infection
     Dosage: APPROVAL NO. GYZZ H20041960
     Route: 048
     Dates: start: 20251129, end: 20251201
  6. OXALIPLATIN [Suspect]
     Active Substance: OXALIPLATIN
     Indication: Colon cancer
     Dosage: OXALIPLATIN INJECTION 200MG IVGTT ONCE IN COMBINATION WITH CAPECITABINE TABLETS 1.5G PO TID (D0-14)
     Route: 042
     Dates: start: 20251101
  7. OXALIPLATIN [Suspect]
     Active Substance: OXALIPLATIN
     Dosage: OXALIPLATIN INJECTION 200MG IVGTT ONCE COMBINED WITH CAPECITABINE TABLETS 1.5G PO TID (D0-14)
     Route: 042
     Dates: start: 20251125

REACTIONS (2)
  - Liver injury [Recovering/Resolving]
  - Myelosuppression [Recovering/Resolving]

NARRATIVE: CASE EVENT DATE: 20251204
